FAERS Safety Report 18965745 (Version 2)
Quarter: 2021Q1

REPORT INFORMATION
  Report Type: Spontaneous
  Country: US (occurrence: US)
  Receive Date: 20210304
  Receipt Date: 20210323
  Transmission Date: 20210420
  Serious: Yes (Other)
  Sender: FDA-Public Use
  Company Number: US-NOVEN PHARMACEUTICALS, INC.-2021US001259

PATIENT
  Age: 9 Year
  Sex: Male
  Weight: 29.48 kg

DRUGS (1)
  1. DAYTRANA [Suspect]
     Active Substance: METHYLPHENIDATE
     Indication: PRODUCT USED FOR UNKNOWN INDICATION
     Dosage: 10MG/9 HOURS, UNKNOWN
     Route: 062

REACTIONS (7)
  - Device adhesion issue [Not Recovered/Not Resolved]
  - Product adhesion issue [Not Recovered/Not Resolved]
  - Adhesive tape use [Not Recovered/Not Resolved]
  - No adverse event [Unknown]
  - Device difficult to use [Not Recovered/Not Resolved]
  - Product administration error [Not Recovered/Not Resolved]
  - Accidental exposure to product [Recovered/Resolved]

NARRATIVE: CASE EVENT DATE: 202102
